FAERS Safety Report 18471154 (Version 4)
Quarter: 2020Q4

REPORT INFORMATION
  Report Type: Report from Study
  Country: US (occurrence: US)
  Receive Date: 20201105
  Receipt Date: 20201209
  Transmission Date: 20210114
  Serious: Yes (Death, Hospitalization, Other)
  Sender: FDA-Public Use
  Company Number: US-ROCHE-2705584

PATIENT
  Age: 52 Year
  Sex: Female
  Weight: 110 kg

DRUGS (24)
  1. PACLITAXEL. [Suspect]
     Active Substance: PACLITAXEL
     Indication: BREAST CANCER METASTATIC
     Dosage: ON DAY 1, 8, 15, 22, 29 AND 36?ONGOING: NO, ON DAYS 1, 8, 15, 22, 29, AND 36, LAST ADMINISTERED DATE
     Route: 042
     Dates: start: 20200424, end: 20201002
  2. ALPRAZOLAM. [Concomitant]
     Active Substance: ALPRAZOLAM
  3. CALCIUM CARBONATE. [Concomitant]
     Active Substance: CALCIUM CARBONATE
  4. POTASSIUM CHLORIDE. [Concomitant]
     Active Substance: POTASSIUM CHLORIDE
  5. TRIAMCINOLONE [Concomitant]
     Active Substance: TRIAMCINOLONE
  6. CHOLECALCIFEROL [Concomitant]
     Active Substance: CHOLECALCIFEROL
  7. FENTANYL. [Concomitant]
     Active Substance: FENTANYL
  8. BLINDED ATEZOLIZUMAB [Suspect]
     Active Substance: ATEZOLIZUMAB
     Indication: BREAST CANCER METASTATIC
     Dosage: ONGOING: NO, LAST ADMINISTERED ON:07-OCT-2020, ON DAY 1 AND 22
     Route: 042
     Dates: start: 20200424, end: 20201007
  9. FOLIC ACID. [Concomitant]
     Active Substance: FOLIC ACID
  10. PROCHLORPERAZINE. [Concomitant]
     Active Substance: PROCHLORPERAZINE
  11. TRAZODONE [Concomitant]
     Active Substance: TRAZODONE HYDROCHLORIDE
  12. TRASTUZUMAB. [Suspect]
     Active Substance: TRASTUZUMAB
     Indication: BREAST CANCER METASTATIC
     Dosage: ONGOING: NO, ON DAYS 1 AND 22; 8MG/KG IV C1D1 ONLY, LAST ADMINISTERED ON:07-?OCT-2020 615 MG AND 8 M
     Route: 042
     Dates: start: 20200424, end: 20201007
  13. VENLAFAXINE [Concomitant]
     Active Substance: VENLAFAXINE HYDROCHLORIDE
  14. PERTUZUMAB. [Suspect]
     Active Substance: PERTUZUMAB
     Indication: BREAST CANCER METASTATIC
     Dosage: ONGOING: NO, ON DAYS 1 AND 22; 840MG IV C1D1 ONLY, LAST ADMINISTERED ON:07-?OCT-2020 840 MG
     Route: 042
     Dates: start: 20200424, end: 20201007
  15. DIPHENOXYLATE/ATROPINE [Concomitant]
     Active Substance: ATROPINE\DIPHENOXYLATE
  16. HYDROCODONE/ACETAMINOPHEN [Concomitant]
     Active Substance: ACETAMINOPHEN\HYDROCODONE
  17. PERTUZUMAB. [Suspect]
     Active Substance: PERTUZUMAB
     Dosage: CYCLE 1 DAY 1
     Route: 042
  18. TRASTUZUMAB. [Suspect]
     Active Substance: TRASTUZUMAB
     Dosage: CYCLE 1 DAY 1
     Route: 042
  19. FLUOCINONIDE. [Concomitant]
     Active Substance: FLUOCINONIDE
  20. GABAPENTIN. [Concomitant]
     Active Substance: GABAPENTIN
  21. LEVOTHYROXINE. [Concomitant]
     Active Substance: LEVOTHYROXINE
  22. BUMETANIDE. [Concomitant]
     Active Substance: BUMETANIDE
  23. FUROSEMIDE. [Concomitant]
     Active Substance: FUROSEMIDE
  24. ONDANSETRON [Concomitant]
     Active Substance: ONDANSETRON

REACTIONS (6)
  - Dehydration [Recovered/Resolved]
  - Respiratory failure [Unknown]
  - Hypotension [Unknown]
  - Sepsis [Fatal]
  - Hypoxia [Unknown]
  - Lymphocyte count decreased [Recovered/Resolved]

NARRATIVE: CASE EVENT DATE: 20201017
